FAERS Safety Report 17478510 (Version 2)
Quarter: 2020Q2

REPORT INFORMATION
  Report Type: Spontaneous
  Country: JP (occurrence: JP)
  Receive Date: 20200229
  Receipt Date: 20200401
  Transmission Date: 20200713
  Serious: Yes (Hospitalization)
  Sender: FDA-Public Use
  Company Number: JP-AMGEN-JPNSP2020032927

PATIENT
  Age: 82 Year
  Sex: Female

DRUGS (1)
  1. RANMARK [Suspect]
     Active Substance: DENOSUMAB
     Indication: OSTEOCHONDROMA
     Dosage: 120 MILLIGRAM
     Route: 058

REACTIONS (2)
  - Cellulitis [Not Recovered/Not Resolved]
  - Off label use [Unknown]
